FAERS Safety Report 16740726 (Version 1)
Quarter: 2019Q3

REPORT INFORMATION
  Report Type: Spontaneous
  Country: ES (occurrence: ES)
  Receive Date: 20190826
  Receipt Date: 20190826
  Transmission Date: 20191005
  Serious: Yes (Other)
  Sender: FDA-Public Use
  Company Number: ES-MYLANLABS-2019M1079329

PATIENT
  Age: 45 Year
  Sex: Female

DRUGS (3)
  1. PIROXICAM. [Suspect]
     Active Substance: PIROXICAM
     Indication: OSTEOARTHRITIS
     Dosage: UNK
     Route: 054
  2. TENOXICAM [Suspect]
     Active Substance: TENOXICAM
     Indication: OSTEOARTHRITIS
     Dosage: UNK
  3. DROXICAM [Suspect]
     Active Substance: DROXICAM
     Indication: OSTEOARTHRITIS
     Dosage: UNK

REACTIONS (2)
  - Therapeutic product cross-reactivity [Unknown]
  - Fixed eruption [Unknown]
